APPROVED DRUG PRODUCT: CEFEPIME HYDROCHLORIDE
Active Ingredient: CEFEPIME HYDROCHLORIDE
Strength: EQ 1GM BASE/VIAL
Dosage Form/Route: INJECTABLE;INJECTION
Application: A202268 | Product #001
Applicant: HOSPIRA INC
Approved: Jul 30, 2012 | RLD: No | RS: No | Type: DISCN